FAERS Safety Report 5911469-5 (Version None)
Quarter: 2008Q4

REPORT INFORMATION
  Report Type: 
  Country: None (occurrence: None)
  Receive Date: 20081007
  Receipt Date: 20080930
  Transmission Date: 20090506
  Serious: Yes (Other)
  Sender: FDA-Public Use
  Company Number: US-PFIZER INC-2008083174

PATIENT
  Sex: Female
  Weight: 47.2 kg

DRUGS (5)
  1. CHANTIX [Suspect]
     Indication: SMOKING CESSATION THERAPY
     Route: 048
     Dates: start: 20080901, end: 20080926
  2. LANTUS [Concomitant]
  3. NOVOLOG [Concomitant]
  4. REGLAN [Concomitant]
  5. DETROL LA [Concomitant]
     Indication: HYPERTONIC BLADDER

REACTIONS (1)
  - BLOOD GLUCOSE INCREASED [None]
